FAERS Safety Report 5785236-X (Version None)
Quarter: 2008Q2

REPORT INFORMATION
  Report Type: 
  Country: None (occurrence: None)
  Receive Date: 20080620
  Receipt Date: 20080620
  Transmission Date: 20081010
  Serious: Yes (Hospitalization)
  Sender: FDA-Public Use
  Company Number: None

PATIENT
  Age: 73 Year
  Sex: Male

DRUGS (1)
  1. GEODON [Suspect]
     Indication: DEPRESSION
     Dosage: 60MG QDAY PO
     Route: 048
     Dates: start: 20080613, end: 20080613

REACTIONS (1)
  - PANCREATITIS [None]
